FAERS Safety Report 4558742-3 (Version None)
Quarter: 2005Q1

REPORT INFORMATION
  Report Type: 
  Country: None (occurrence: None)
  Receive Date: 20050121
  Receipt Date: 20050121
  Transmission Date: 20050727
  Serious: No
  Sender: FDA-Public Use
  Company Number: None

PATIENT
  Sex: Female
  Weight: 48.7617 kg

DRUGS (1)
  1. LISINOPRIL [Suspect]
     Indication: ESSENTIAL HYPERTENSION
     Dosage: 5MG   DAILY   ORAL
     Route: 048
     Dates: start: 20041106, end: 20041115

REACTIONS (2)
  - COUGH [None]
  - THROAT IRRITATION [None]
